FAERS Safety Report 22540307 (Version 1)
Quarter: 2023Q2

REPORT INFORMATION
  Report Type: Spontaneous
  Country: JP (occurrence: JP)
  Receive Date: 20230609
  Receipt Date: 20230609
  Transmission Date: 20230722
  Serious: Yes (Life-Threatening, Other)
  Sender: FDA-Public Use
  Company Number: JP-TAIHO-2023-004189

PATIENT
  Age: 72 Year
  Sex: Male

DRUGS (4)
  1. ABRAXANE [Suspect]
     Active Substance: PACLITAXEL
     Indication: Adenocarcinoma gastric
     Dosage: 100 MG/M2/DAY, DETAILS NOT REPORTED?DAILY DOSE: 100.0 MILLIGRAM(S)/SQ. METER
     Route: 041
  2. ABRAXANE [Suspect]
     Active Substance: PACLITAXEL
     Dosage: AT A REDUCED DOSE, DETAILS NOT REPORTED
     Route: 041
  3. CYRAMZA [Suspect]
     Active Substance: RAMUCIRUMAB
     Indication: Adenocarcinoma gastric
     Dosage: 8 MG/KG/DAY, DETAILS NOT REPORTED?DAILY DOSE: 8.0 MILLIGRAM(S)/KILOGRAM
  4. CYRAMZA [Suspect]
     Active Substance: RAMUCIRUMAB
     Dosage: AT A REDUCED DOSE, DETAILS NOT REPORTED

REACTIONS (1)
  - Neutropenia [Unknown]
